FAERS Safety Report 7977002-1 (Version None)
Quarter: 2011Q4

REPORT INFORMATION
  Report Type: 
  Country: None (occurrence: None)
  Receive Date: 20111213
  Receipt Date: 20111110
  Transmission Date: 20120403
  Serious: No
  Sender: FDA-Public Use
  Company Number: US-AMGEN-USASP2011056325

PATIENT
  Age: 83 Year
  Sex: Female

DRUGS (2)
  1. ENBREL [Suspect]
     Indication: PSORIASIS
     Dosage: 50 MG, QWK
     Dates: start: 20091118, end: 20110801
  2. STELARA [Concomitant]
     Dosage: UNK

REACTIONS (8)
  - DIZZINESS [None]
  - INJECTION SITE PAIN [None]
  - LACRIMATION INCREASED [None]
  - ADVERSE DRUG REACTION [None]
  - INJECTION SITE SWELLING [None]
  - NAUSEA [None]
  - PSORIASIS [None]
  - PRURITUS GENERALISED [None]
